FAERS Safety Report 5107123-2 (Version None)
Quarter: 2006Q3

REPORT INFORMATION
  Report Type: 
  Country: None (occurrence: None)
  Receive Date: 20060913
  Receipt Date: 20060901
  Transmission Date: 20061208
  Serious: Yes (Death)
  Sender: FDA-Public Use
  Company Number: 2006-DE-04640GD

PATIENT
  Age: 40 Year
  Sex: Male

DRUGS (9)
  1. SERTRALINE [Suspect]
     Indication: MAJOR DEPRESSION
     Dosage: 100 MG
  2. BUPROPION HCL [Suspect]
     Indication: MAJOR DEPRESSION
     Dosage: 300 MG
  3. MODAFINIL [Suspect]
     Indication: FATIGUE
     Dosage: SEE IMAGE
  4. MODAFINIL [Suspect]
     Indication: HYPERSOMNIA
     Dosage: SEE IMAGE
  5. MODAFINIL [Suspect]
     Indication: FATIGUE
     Dosage: SEE IMAGE
  6. MODAFINIL [Suspect]
     Indication: HYPERSOMNIA
     Dosage: SEE IMAGE
  7. PARACETAMOL [Concomitant]
  8. ALKA SELTZER (ACETYLSALICYLIC ACID) [Concomitant]
  9. LIDOCAINE [Concomitant]

REACTIONS (8)
  - COMPLETED SUICIDE [None]
  - DEPRESSIVE SYMPTOM [None]
  - FATIGUE [None]
  - HEADACHE [None]
  - NASOPHARYNGITIS [None]
  - PARTNER STRESS [None]
  - PSYCHIATRIC EVALUATION ABNORMAL [None]
  - SOMNOLENCE [None]
